FAERS Safety Report 5638226-1 (Version None)
Quarter: 2008Q1

REPORT INFORMATION
  Report Type: 
  Country: None (occurrence: None)
  Receive Date: 20080220
  Receipt Date: 20071214
  Transmission Date: 20080703
  Serious: Yes (Other)
  Sender: FDA-Public Use
  Company Number: 64994

PATIENT
  Age: 48 Year
  Sex: Female
  Weight: 70.7611 kg

DRUGS (3)
  1. LICE SHAMPOO LIQUID/PERRIGO [Suspect]
     Indication: LICE INFESTATION
     Dosage: ONCE/TOPICAL
     Route: 061
     Dates: start: 20071207, end: 20071207
  2. LICE CREME RINSE/PERRIGO [Suspect]
     Indication: LICE INFESTATION
     Dosage: ONCE/TOPICAL
     Route: 061
     Dates: start: 20071207, end: 20071207
  3. TOPROL XL 20 MG CAPSULE/QD [Concomitant]

REACTIONS (6)
  - DYSPEPSIA [None]
  - DYSPNOEA [None]
  - PRURITUS [None]
  - THROAT IRRITATION [None]
  - URTICARIA [None]
  - WHEEZING [None]
